FAERS Safety Report 8172715-3 (Version None)
Quarter: 2012Q1

REPORT INFORMATION
  Report Type: 
  Country: None (occurrence: None)
  Receive Date: 20120229
  Receipt Date: 20120220
  Transmission Date: 20120608
  Serious: Yes (Other)
  Sender: FDA-Public Use
  Company Number: CL-AMGEN-CHLSP2012005128

PATIENT
  Age: 41 Year
  Sex: Female
  Weight: 49 kg

DRUGS (4)
  1. ENBREL [Suspect]
     Indication: PSORIATIC ARTHROPATHY
     Dosage: 50 MG, WEEKLY
     Dates: start: 20111123
  2. FOLIC ACID [Concomitant]
     Dosage: 5 MG, WEEKLY
     Route: 048
  3. OMEPRAZOLE [Concomitant]
     Dosage: 20 MG, 2X/DAY
  4. METHOTREXATE SODIUM [Concomitant]
     Dosage: 17.5 MG, WEEKLY

REACTIONS (1)
  - THROMBOPHLEBITIS SUPERFICIAL [None]
